FAERS Safety Report 13987552 (Version 3)
Quarter: 2017Q4

REPORT INFORMATION
  Report Type: Spontaneous
  Country: US (occurrence: PL)
  Receive Date: 20170919
  Receipt Date: 20171103
  Transmission Date: 20180321
  Serious: Yes (Hospitalization)
  Sender: FDA-Public Use
  Company Number: US-LPDUSPRD-20171307

PATIENT
  Age: 68 Year
  Sex: Male

DRUGS (21)
  1. BISOCARD [Concomitant]
     Active Substance: BISOPROLOL
     Dosage: 5 MG
     Route: 048
  2. ATOROVIS [Concomitant]
     Dosage: 20 MG
     Route: 048
  3. GLYCEROLUM [Concomitant]
     Dosage: 2 IN 1 DAY
     Route: 054
     Dates: start: 20170728, end: 20170728
  4. TRIFAS [Concomitant]
     Dosage: 10 MG ONCE DAILY
     Route: 048
     Dates: end: 20170721
  5. GENSULIN R [Concomitant]
     Active Substance: INSULIN HUMAN
     Dosage: 3 IN 1 DAY
     Route: 058
     Dates: start: 20170720, end: 20170721
  6. INSULIN [Concomitant]
     Active Substance: INSULIN NOS
     Dosage: 1 DOSE UNIT
     Route: 042
     Dates: start: 20170721, end: 20170724
  7. FERINJECT [Suspect]
     Active Substance: FERRIC CARBOXYMALTOSE
     Dosage: 20 ML
     Route: 042
     Dates: start: 20170803, end: 20170803
  8. DIUVER [Concomitant]
     Active Substance: TORSEMIDE
     Dosage: 5 MG QD
     Route: 048
     Dates: start: 20170725, end: 20170728
  9. SIOFOR [Concomitant]
     Active Substance: METFORMIN HYDROCHLORIDE
     Dosage: 1000 MG, 2 IN 1 D
     Route: 048
     Dates: end: 20170720
  10. TRITACE [Concomitant]
     Active Substance: RAMIPRIL
     Dosage: 2.5 MG ONCE  DAILY
     Route: 048
     Dates: start: 2017, end: 20170727
  11. POTASSIUM CHLORIDE. [Concomitant]
     Active Substance: POTASSIUM CHLORIDE
     Dosage: 20 MEQ QD
     Route: 042
     Dates: start: 20170725, end: 20170726
  12. AMARYL [Concomitant]
     Active Substance: GLIMEPIRIDE
     Dosage: 4 MG
     Route: 048
  13. OPACORDEN [Concomitant]
     Active Substance: AMIODARONE HYDROCHLORIDE
     Dosage: 200 MG (5 IN 1WK)
     Route: 048
     Dates: start: 20170724, end: 20170724
  14. KALIPOZ [Concomitant]
     Active Substance: POTASSIUM CHLORIDE
     Dosage: 1 TAB ONCE DAILY
     Route: 048
     Dates: start: 20170725, end: 20170802
  15. NO-SPA [Concomitant]
     Active Substance: DROTAVERINE HYDROCHLORIDE
     Dosage: 1 AMP BID
     Route: 042
     Dates: start: 20170723, end: 20170723
  16. SODIUM BICARBONATE. [Concomitant]
     Active Substance: SODIUM BICARBONATE
     Dosage: 3 AMP QD
     Route: 042
     Dates: start: 20170725, end: 20170726
  17. LACTULOSA [Concomitant]
     Active Substance: LACTULOSE
     Dosage: 15 ML QD
     Route: 048
     Dates: start: 20170727, end: 20170727
  18. GENSULIN N [Concomitant]
     Dosage: 6
     Route: 058
     Dates: start: 20170720
  19. POLOCARD [Concomitant]
     Active Substance: ASPIRIN
     Dosage: 75 MG
     Route: 048
  20. GENSULIN N( [Concomitant]
     Dosage: 1 IN 1 D
     Route: 058
     Dates: start: 20170720
  21. FUROSEMIDE. [Concomitant]
     Active Substance: FUROSEMIDE
     Dosage: 20 MG TID
     Route: 042
     Dates: start: 20170724, end: 20170727

REACTIONS (1)
  - Chronic kidney disease [Recovered/Resolved]

NARRATIVE: CASE EVENT DATE: 20170823
